FAERS Safety Report 21140049 (Version 3)
Quarter: 2022Q3

REPORT INFORMATION
  Report Type: Spontaneous
  Country: JP (occurrence: JP)
  Receive Date: 20220728
  Receipt Date: 20220908
  Transmission Date: 20221027
  Serious: Yes (Hospitalization)
  Sender: FDA-Public Use
  Company Number: JP-JNJFOC-20220753757

PATIENT

DRUGS (1)
  1. HALOMONTH [Suspect]
     Active Substance: HALOPERIDOL DECANOATE
     Indication: Product used for unknown indication
     Dosage: DOSE UNKNOWN,HALOMONTH
     Route: 030

REACTIONS (1)
  - Hospitalisation [Unknown]
